FAERS Safety Report 8578492 (Version 10)
Quarter: 2013Q3

REPORT INFORMATION
  Report Type: Spontaneous
  Country: US (occurrence: US)
  Receive Date: 20120524
  Receipt Date: 20130729
  Transmission Date: 20140515
  Serious: Yes (Hospitalization, Disabling, Other)
  Sender: FDA-Public Use
  Company Number: US-009507513-1205USA02887

PATIENT
  Sex: Female
  Weight: 74.83 kg

DRUGS (3)
  1. FOSAMAX [Suspect]
     Indication: OSTEOPOROSIS
     Dosage: 10 MG, QD
     Route: 048
     Dates: start: 199901
  2. FOSAMAX [Suspect]
     Dosage: 70 MG QW
     Route: 048
     Dates: start: 200207, end: 200802
  3. ALENDRONATE SODIUM [Suspect]
     Indication: OSTEOPOROSIS
     Dosage: 70 MG, UNK
     Route: 048
     Dates: start: 200803, end: 200805

REACTIONS (45)
  - Intramedullary rod insertion [Not Recovered/Not Resolved]
  - Femur fracture [Not Recovered/Not Resolved]
  - Femur fracture [Not Recovered/Not Resolved]
  - Osteoporosis [Not Recovered/Not Resolved]
  - Stress fracture [Not Recovered/Not Resolved]
  - Low turnover osteopathy [Not Recovered/Not Resolved]
  - Impaired healing [Unknown]
  - Colon cancer [Unknown]
  - Colectomy [Unknown]
  - Arthroscopic surgery [Unknown]
  - Closed fracture manipulation [Unknown]
  - Transitional cell carcinoma [Not Recovered/Not Resolved]
  - Nephroureterectomy [Unknown]
  - Hypertension [Unknown]
  - Packed red blood cell transfusion [Unknown]
  - Haemoglobin decreased [Unknown]
  - Fall [Unknown]
  - Renal cancer [Unknown]
  - Device failure [Unknown]
  - Removal of internal fixation [Unknown]
  - Dyspnoea [Unknown]
  - Adverse event [Unknown]
  - Tooth disorder [Unknown]
  - Tooth disorder [Unknown]
  - Meniscus injury [Unknown]
  - Radius fracture [Unknown]
  - Atelectasis [Unknown]
  - Blood cholesterol increased [Unknown]
  - Type 2 diabetes mellitus [Unknown]
  - Dyslipidaemia [Unknown]
  - Varicose vein [Unknown]
  - Adverse drug reaction [Unknown]
  - Adrenal adenoma [Unknown]
  - Rib fracture [Unknown]
  - Upper limb fracture [Unknown]
  - Electrocardiogram abnormal [Unknown]
  - Chronic obstructive pulmonary disease [Unknown]
  - Varicose vein [Unknown]
  - Lacunar infarction [Unknown]
  - Bladder neoplasm surgery [Unknown]
  - Bursitis [Unknown]
  - Rotator cuff syndrome [Unknown]
  - Myalgia [Unknown]
  - Musculoskeletal pain [Unknown]
  - Arthralgia [Unknown]
